FAERS Safety Report 20125731 (Version 1)
Quarter: 2021Q4

REPORT INFORMATION
  Report Type: Spontaneous
  Country: CN (occurrence: CN)
  Receive Date: 20211129
  Receipt Date: 20211129
  Transmission Date: 20220303
  Serious: Yes (Hospitalization)
  Sender: FDA-Public Use
  Company Number: CN-PFIZER INC-202101619493

PATIENT
  Age: 17 Year
  Sex: Male

DRUGS (2)
  1. SERTRALINE HYDROCHLORIDE [Suspect]
     Active Substance: SERTRALINE HYDROCHLORIDE
     Indication: Affective disorder
     Dosage: 25 MG, 1X/DAY
     Route: 048
     Dates: start: 20210928, end: 20211012
  2. OLANZAPINE [Suspect]
     Active Substance: OLANZAPINE
     Indication: Cognitive disorder
     Dosage: 2.5 MG, 1X/DAY
     Route: 048
     Dates: start: 20210928, end: 20211012

REACTIONS (1)
  - Hepatic function abnormal [Recovering/Resolving]

NARRATIVE: CASE EVENT DATE: 20211012
